FAERS Safety Report 21636244 (Version 9)
Quarter: 2025Q3

REPORT INFORMATION
  Report Type: Report from Study
  Country: US (occurrence: US)
  Receive Date: 20221124
  Receipt Date: 20250925
  Transmission Date: 20251021
  Serious: Yes (Life-Threatening, Hospitalization, Other)
  Sender: UCB
  Company Number: US-UCBSA-2022018078

PATIENT
  Age: 72 Year
  Sex: Female
  Weight: 57.87 kg

DRUGS (7)
  1. LACOSAMIDE [Suspect]
     Active Substance: LACOSAMIDE
     Indication: Seizure
     Dosage: 200MG AM AND 250MG PM
  2. LACOSAMIDE [Suspect]
     Active Substance: LACOSAMIDE
     Indication: Epilepsy
  3. LACOSAMIDE [Suspect]
     Active Substance: LACOSAMIDE
     Dosage: 200 MILLIGRAM, 2X/DAY (BID)
     Dates: start: 2022
  4. LACOSAMIDE [Suspect]
     Active Substance: LACOSAMIDE
     Dosage: 200MG-1 TAB BID + 50MG- 1 TAB DAILY
  5. LACOSAMIDE [Suspect]
     Active Substance: LACOSAMIDE
     Dosage: 50 MG AND 200 MG ONCE DAILY IN PM
  6. LACOSAMIDE [Suspect]
     Active Substance: LACOSAMIDE
     Dosage: 200 MILLIGRAM, 2X/DAY (BID)
  7. CRESTOR [Suspect]
     Active Substance: ROSUVASTATIN CALCIUM
     Indication: Blood cholesterol

REACTIONS (22)
  - Hospitalisation [Unknown]
  - Vertigo [Unknown]
  - Dizziness [Not Recovered/Not Resolved]
  - Sinusitis [Recovered/Resolved]
  - Multiple fractures [Unknown]
  - Fall [Not Recovered/Not Resolved]
  - Blindness transient [Unknown]
  - COVID-19 [Recovered/Resolved]
  - Physiotherapy [Not Recovered/Not Resolved]
  - Concussion [Recovering/Resolving]
  - Balance disorder [Not Recovered/Not Resolved]
  - Headache [Unknown]
  - Somnolence [Unknown]
  - Photosensitivity reaction [Unknown]
  - Abdominal discomfort [Unknown]
  - Vision blurred [Unknown]
  - Cardiac pacemaker insertion [Not Recovered/Not Resolved]
  - Liver disorder [Not Recovered/Not Resolved]
  - Overdose [Unknown]
  - Extra dose administered [Unknown]
  - Product use issue [Unknown]
  - Inappropriate schedule of product administration [Unknown]

NARRATIVE: CASE EVENT DATE: 20220515
